FAERS Safety Report 8816692 (Version 1)
Quarter: 2012Q4

REPORT INFORMATION
  Report Type: Spontaneous
  Country: US (occurrence: None)
  Receive Date: 20120928
  Receipt Date: 20120928
  Transmission Date: 20130627
  Serious: Yes (Hospitalization, Other)
  Sender: FDA-Public Use
  Company Number: HA12-277-AE

PATIENT
  Age: 79 Year
  Sex: Female

DRUGS (2)
  1. TRAMADOL HYDRCHLORIDE [Suspect]
     Indication: PAIN
     Route: 048
  2. CYMBALTA [Concomitant]

REACTIONS (6)
  - Serotonin syndrome [None]
  - Drug interaction [None]
  - Vertigo [None]
  - Nausea [None]
  - Hyperhidrosis [None]
  - Hypokinesia [None]
